FAERS Safety Report 6285833-1 (Version None)
Quarter: 2009Q3

REPORT INFORMATION
  Report Type: 
  Country: None (occurrence: None)
  Receive Date: 20090728
  Receipt Date: 20090723
  Transmission Date: 20100115
  Serious: Yes (Hospitalization)
  Sender: FDA-Public Use
  Company Number: US-BIOGENIDEC-2009BI023001

PATIENT
  Age: 38 Year
  Sex: Female

DRUGS (3)
  1. AVONEX [Suspect]
     Indication: MULTIPLE SCLEROSIS
     Route: 030
     Dates: start: 20080222
  2. MEDICINE [NOS] [Concomitant]
  3. ANTIDEPRESSANT [NOS] [Concomitant]

REACTIONS (2)
  - CONVULSION [None]
  - MEMORY IMPAIRMENT [None]
